FAERS Safety Report 21345819 (Version 1)
Quarter: 2022Q3

REPORT INFORMATION
  Report Type: Report from Study
  Country: US (occurrence: US)
  Receive Date: 20220916
  Receipt Date: 20220916
  Transmission Date: 20221027
  Serious: Yes (Other)
  Sender: FDA-Public Use
  Company Number: US-PFIZER INC-PV202200064130

PATIENT
  Age: 65 Year
  Sex: Female
  Weight: 70.295 kg

DRUGS (12)
  1. NARDIL [Interacting]
     Active Substance: PHENELZINE SULFATE
     Dosage: UNK
  2. HUMIRA [Interacting]
     Active Substance: ADALIMUMAB
     Indication: Rheumatoid arthritis
     Dosage: CITRATE FREE (40 MG, 1 IN 2 WK)
     Route: 058
     Dates: start: 202101, end: 202105
  3. HUMIRA [Interacting]
     Active Substance: ADALIMUMAB
     Dosage: CITRATE FREE (40 MG, 1 IN 2 WK)
     Route: 058
     Dates: start: 202106, end: 202107
  4. HUMIRA [Interacting]
     Active Substance: ADALIMUMAB
     Dosage: CITRATE FREE (40 MG, 1 IN 2 WK)
     Route: 058
     Dates: start: 20220814, end: 2022
  5. METHOTREXATE [Concomitant]
     Active Substance: METHOTREXATE
     Dosage: UNK
  6. PRAMIPEXOLE [Concomitant]
     Active Substance: PRAMIPEXOLE
     Dosage: UNK
  7. KLONOPIN [Concomitant]
     Active Substance: CLONAZEPAM
     Dosage: UNK
  8. LITHIUM CARBONATE [Concomitant]
     Active Substance: LITHIUM CARBONATE
     Dosage: UNK
  9. METFORMIN [Concomitant]
     Active Substance: METFORMIN HYDROCHLORIDE
     Dosage: UNK
  10. VALTREX [Concomitant]
     Active Substance: VALACYCLOVIR HYDROCHLORIDE
     Dosage: UNK
  11. CEPHALEXIN [Concomitant]
     Active Substance: CEPHALEXIN
     Dosage: UNK
  12. PENICILLIN [Concomitant]
     Active Substance: PENICILLIN
     Dosage: UNK

REACTIONS (9)
  - Cataract [Not Recovered/Not Resolved]
  - Cellulitis [Recovered/Resolved]
  - Skin laceration [Recovered/Resolved]
  - Dry eye [Unknown]
  - Road traffic accident [Unknown]
  - Wound infection [Not Recovered/Not Resolved]
  - Staphylococcal infection [Recovered/Resolved]
  - Food interaction [Unknown]
  - Drug interaction [Unknown]

NARRATIVE: CASE EVENT DATE: 20210501
